FAERS Safety Report 24267546 (Version 1)
Quarter: 2024Q3

REPORT INFORMATION
  Report Type: Report from Study
  Country: US (occurrence: US)
  Receive Date: 20240830
  Receipt Date: 20240830
  Transmission Date: 20241017
  Serious: Yes (Hospitalization)
  Sender: ACADIA PHARMACEUTICALS
  Company Number: US-ACADIA PHARMACEUTICALS INC.-ACA-2024-PIM-004636

PATIENT
  Age: 75 Year
  Sex: Female

DRUGS (22)
  1. NUPLAZID [Suspect]
     Active Substance: PIMAVANSERIN TARTRATE
     Indication: Parkinson^s disease
     Dosage: 34 MILLIGRAM, QD
     Route: 048
     Dates: start: 202403
  2. DAPTOMYCIN [Concomitant]
     Active Substance: DAPTOMYCIN
  3. COREG [Concomitant]
     Active Substance: CARVEDILOL
  4. NITROSTAT [Concomitant]
     Active Substance: NITROGLYCERIN
  5. LANTUS [Concomitant]
     Active Substance: INSULIN GLARGINE
  6. STOOL SOFTENER (DOCUSATE) [Concomitant]
     Active Substance: DOCUSATE
  7. PYRIDOSTIGMINE BROMIDE [Concomitant]
     Active Substance: PYRIDOSTIGMINE BROMIDE
  8. NOVOLOG [Concomitant]
     Active Substance: INSULIN ASPART
  9. MIDODRINE [Concomitant]
     Active Substance: MIDODRINE
  10. OXYCODONE [Concomitant]
     Active Substance: OXYCODONE
  11. CRESTOR [Concomitant]
     Active Substance: ROSUVASTATIN CALCIUM
  12. IRON [Concomitant]
     Active Substance: IRON
  13. NEUPRO [Concomitant]
     Active Substance: ROTIGOTINE
  14. POTASSIUM [Concomitant]
     Active Substance: POTASSIUM
  15. PRIMIDONE [Concomitant]
     Active Substance: PRIMIDONE
  16. FUROSEMIDE [Concomitant]
     Active Substance: FUROSEMIDE
  17. METFORMIN [Concomitant]
     Active Substance: METFORMIN HYDROCHLORIDE
  18. METHOCARBAMOL [Concomitant]
     Active Substance: METHOCARBAMOL
  19. AMANTADINE [Concomitant]
     Active Substance: AMANTADINE
  20. GEMTESA [Concomitant]
     Active Substance: VIBEGRON
  21. PANTOPRAZOLE [Concomitant]
     Active Substance: PANTOPRAZOLE
  22. LOSARTAN [Concomitant]
     Active Substance: LOSARTAN\LOSARTAN POTASSIUM

REACTIONS (2)
  - Spinal operation [Unknown]
  - Staphylococcal infection [Unknown]

NARRATIVE: CASE EVENT DATE: 20240618
